FAERS Safety Report 7622503-9 (Version None)
Quarter: 2011Q3

REPORT INFORMATION
  Report Type: 
  Country: None (occurrence: None)
  Receive Date: 20110712
  Receipt Date: 20110706
  Transmission Date: 20111222
  Serious: Yes (Hospitalization)
  Sender: FDA-Public Use
  Company Number: 2011SP031450

PATIENT
  Age: 53 Year
  Sex: Female

DRUGS (2)
  1. TEMODAL [Suspect]
     Indication: BRAIN NEOPLASM
     Dosage: 125 MG;QD;PO
     Route: 048
     Dates: start: 20110201, end: 20110301
  2. KORDEXA [Concomitant]

REACTIONS (3)
  - PLATELET COUNT DECREASED [None]
  - BLOOD URINE PRESENT [None]
  - PYREXIA [None]
